FAERS Safety Report 4474253-8 (Version None)
Quarter: 2004Q4

REPORT INFORMATION
  Report Type: 
  Country: None (occurrence: None)
  Receive Date: 20041008
  Receipt Date: 20040924
  Transmission Date: 20050328
  Serious: Yes (Hospitalization)
  Sender: FDA-Public Use
  Company Number: 2004AP05041

PATIENT
  Age: 51 Year
  Sex: Female

DRUGS (16)
  1. IRESSA [Suspect]
     Indication: OROPHARYNGEAL CANCER STAGE UNSPECIFIED
     Dosage: 500 MG DAILY PO
     Route: 048
     Dates: start: 20040603
  2. DURAGESIC [Concomitant]
  3. MORFIN [Concomitant]
  4. ACETAMINOPHEN [Concomitant]
  5. NEURONTIN [Concomitant]
  6. SAROTEN ^BAYER VITAL^ [Concomitant]
  7. LAXOBERAL ^BOEHRINGER INGELHEIM^ [Concomitant]
  8. LORABID [Concomitant]
  9. LOSEC [Concomitant]
  10. XYLOCAINE [Concomitant]
  11. DIFLUCAN [Concomitant]
  12. LACTULOSE [Concomitant]
  13. ACETYLCYSTEINE [Concomitant]
  14. FUROSEMIDE [Concomitant]
  15. PANTOPRAZOLE SODIUM [Concomitant]
  16. STILNOCT [Concomitant]

REACTIONS (1)
  - TONGUE HAEMORRHAGE [None]
